FAERS Safety Report 5680723-7 (Version None)
Quarter: 2008Q1

REPORT INFORMATION
  Report Type: 
  Country: None (occurrence: None)
  Receive Date: 20080326
  Receipt Date: 20080303
  Transmission Date: 20080703
  Serious: No
  Sender: FDA-Public Use
  Company Number: US-BOEHRINGER INGELHEIM GMBH, GERMANY-2008-BP-03208BP

PATIENT
  Age: 39 Year
  Sex: Female

DRUGS (4)
  1. ZANTAC 150 [Suspect]
     Indication: DYSPEPSIA
     Route: 048
     Dates: start: 20080201
  2. ZANTAC 150 [Suspect]
  3. ALIGN [Concomitant]
     Indication: IRRITABLE BOWEL SYNDROME
  4. BIRTH CONTROL PILL [Concomitant]
     Indication: CONTRACEPTION

REACTIONS (3)
  - OEDEMA PERIPHERAL [None]
  - PRURITUS [None]
  - URTICARIA [None]
